FAERS Safety Report 23192665 (Version 3)
Quarter: 2024Q4

REPORT INFORMATION
  Report Type: Spontaneous
  Country: US (occurrence: US)
  Receive Date: 20231116
  Receipt Date: 20241110
  Transmission Date: 20250115
  Serious: No
  Sender: SANOFI AVENTIS
  Company Number: US-SA-SAC20231110000838

PATIENT
  Age: 68 Year
  Sex: Male

DRUGS (2)
  1. DUPIXENT [Suspect]
     Active Substance: DUPILUMAB
     Indication: Neurodermatitis
     Dosage: 300 MG, QOW
     Route: 058
     Dates: start: 20230912
  2. DUPIXENT [Suspect]
     Active Substance: DUPILUMAB
     Indication: Dermatitis atopic

REACTIONS (7)
  - Discomfort [Not Recovered/Not Resolved]
  - Sleep disorder [Not Recovered/Not Resolved]
  - Skin fissures [Not Recovered/Not Resolved]
  - Erythema [Not Recovered/Not Resolved]
  - Rash [Not Recovered/Not Resolved]
  - Neurodermatitis [Recovering/Resolving]
  - Rash [Not Recovered/Not Resolved]

NARRATIVE: CASE EVENT DATE: 20231001
